FAERS Safety Report 8824470 (Version 1)
Quarter: 2012Q4

REPORT INFORMATION
  Report Type: 
  Country: US (occurrence: US)
  Receive Date: 20121004
  Receipt Date: 20121004
  Transmission Date: 20130627
  Serious: No
  Sender: FDA-Public Use
  Company Number: US-VIIV HEALTHCARE LIMITED-A0982896A

PATIENT
  Sex: Female

DRUGS (2)
  1. SELZENTRY [Suspect]
     Indication: HIV INFECTION
     Route: 048
  2. NO CONCURRENT MEDICATION [Concomitant]

REACTIONS (4)
  - Malaise [Unknown]
  - Cough [Unknown]
  - Viral infection [Unknown]
  - Chills [Unknown]
